FAERS Safety Report 12521493 (Version 2)
Quarter: 2016Q3

REPORT INFORMATION
  Report Type: Report from Study
  Country: US (occurrence: US)
  Receive Date: 20160701
  Receipt Date: 20160711
  Transmission Date: 20161109
  Serious: Yes (Hospitalization)
  Sender: FDA-Public Use
  Company Number: US-ACTELION-A-US2016-138658

PATIENT
  Age: 45 Year
  Sex: Male

DRUGS (1)
  1. VELETRI [Suspect]
     Active Substance: EPOPROSTENOL
     Indication: PULMONARY ARTERIAL HYPERTENSION
     Dosage: 24.6 NG/KG, PER MIN
     Route: 042
     Dates: start: 20150203

REACTIONS (6)
  - Headache [Unknown]
  - Device dislocation [Unknown]
  - Treatment noncompliance [Unknown]
  - Drug dose omission [Unknown]
  - Overdose [Unknown]
  - Malaise [Unknown]

NARRATIVE: CASE EVENT DATE: 20160622
